FAERS Safety Report 19080241 (Version 2)
Quarter: 2021Q2

REPORT INFORMATION
  Report Type: Report from Study
  Country: None (occurrence: US)
  Receive Date: 20210401
  Receipt Date: 20210409
  Transmission Date: 20210717
  Serious: Yes (Hospitalization)
  Sender: FDA-Public Use
  Company Number: US-ABBVIE-21K-163-3833948-00

PATIENT
  Age: 56 Year
  Sex: Female
  Weight: 93.52 kg

DRUGS (1)
  1. MAVYRET [Suspect]
     Active Substance: GLECAPREVIR\PIBRENTASVIR
     Indication: HEPATITIS C
     Dosage: 3 TABLETS AT SAME TIME ONCE DAILY WITH FOOD
     Route: 048
     Dates: start: 20210224, end: 20210227

REACTIONS (7)
  - Dehydration [Unknown]
  - Blood glucose increased [Unknown]
  - Dizziness [Recovered/Resolved]
  - Dizziness [Recovered/Resolved]
  - Acute kidney injury [Unknown]
  - Constipation [Unknown]
  - Medication error [Not Recovered/Not Resolved]

NARRATIVE: CASE EVENT DATE: 20210224
